FAERS Safety Report 24031660 (Version 2)
Quarter: 2024Q4

REPORT INFORMATION
  Report Type: Report from Study
  Country: ZA (occurrence: ZA)
  Receive Date: 20240629
  Receipt Date: 20241223
  Transmission Date: 20250114
  Serious: Yes (Death)
  Sender: ABBVIE
  Company Number: ZA-ABBOTT-2024A-1383449

PATIENT
  Age: 94 Year
  Sex: Female

DRUGS (21)
  1. CREON [Suspect]
     Active Substance: PANCRELIPASE AMYLASE\PANCRELIPASE LIPASE\PANCRELIPASE PROTEASE
     Indication: Cystic fibrosis
     Dosage: ONE TO TWO THREE TIMES A DAY?10000 150  MILLIGRAM
     Route: 048
  2. DORMONOCT [Concomitant]
     Active Substance: LOPRAZOLAM
     Indication: Insomnia
     Dosage: FORM STRENGTH: 2 MILLIGRAM ONE DAILY
     Route: 048
  3. FENTANYL [Concomitant]
     Active Substance: FENTANYL
     Indication: Pain
     Dosage: FORM STRENGTH:12 MICROGRAM
     Route: 061
  4. SYNALEVE [Concomitant]
     Indication: Pain
     Dosage: TWO AT NIGHT
     Route: 048
  5. ATIVAN [Concomitant]
     Active Substance: LORAZEPAM
     Indication: Anxiety
     Dosage: FORM STRENGTH: 1 MICROGRAM
     Route: 048
  6. PANTOPRAZOLE SODIUM [Concomitant]
     Active Substance: PANTOPRAZOLE SODIUM
     Indication: Gastrooesophageal reflux disease
     Dosage: FORM STRENGTH: 20 MILLIGRAM
  7. POTASSIUM CHLORIDE [Concomitant]
     Active Substance: POTASSIUM CHLORIDE
     Indication: Hypokalaemia
     Dosage: 600 MG ONE TWICE DAILY
     Route: 048
  8. ACETYLCYSTEINE [Concomitant]
     Active Substance: ACETYLCYSTEINE
     Indication: Product used for unknown indication
     Dosage: FORM STRENGTH: 600 MICROGRAM ONE DAILY
     Route: 048
  9. FOSFOMYCIN TROMETHAMINE [Concomitant]
     Active Substance: FOSFOMYCIN TROMETHAMINE
     Indication: Product used for unknown indication
     Dosage: FORM STRENGTH:3 GRAM SINGLE
     Route: 048
  10. Tendia p [Concomitant]
     Indication: Type 2 diabetes mellitus
     Dosage: FORM SRENGTH:30 MILLIGRAM ONE DAILY
     Route: 048
  11. ESCITALOPRAM [Concomitant]
     Active Substance: ESCITALOPRAM OXALATE
     Indication: Decreased appetite
     Dosage: FORM STRENGTH: 5 MILLIGRAM ONE DAILY
     Route: 048
  12. ZITHROMAX [Concomitant]
     Active Substance: AZITHROMYCIN DIHYDRATE
     Indication: Product used for unknown indication
     Dosage: FORM STRENGTH: 200 MILLIGRAM, 10 MILLIMETER, PER DAY
     Route: 048
  13. LASIX [Concomitant]
     Active Substance: FUROSEMIDE
     Indication: Hepatic cirrhosis
     Dosage: FORM STRENGTH: 20 MILLIGRAM ONE DAILY
     Route: 048
  14. NEUROBION [Concomitant]
     Active Substance: CYANOCOBALAMIN\PYRIDOXINE\THIAMINE
     Indication: Product used for unknown indication
     Dosage: INJECT ONCE PER WEEK
     Route: 030
  15. PECTROLYTE [Concomitant]
     Indication: Product used for unknown indication
     Route: 048
  16. MYPAID FORTE [Concomitant]
     Active Substance: ACETAMINOPHEN\IBUPROFEN
     Indication: Product used for unknown indication
     Dosage: 2 THREE TIMES A DAY
     Route: 048
  17. BUTYLSCOPOLAMINE BROMIDE\METAMIZOLE SODIUM [Concomitant]
     Active Substance: BUTYLSCOPOLAMINE BROMIDE\METAMIZOLE SODIUM
     Indication: Product used for unknown indication
     Route: 048
  18. ECOTRIN [Concomitant]
     Active Substance: ASPIRIN
     Indication: Blood disorder prophylaxis
     Dosage: FORM STRENGTH: 81 MILLIGRAM ONE DAILY
     Route: 048
  19. QUETIAPINE [Concomitant]
     Active Substance: QUETIAPINE
     Indication: Schizophrenia
     Dosage: FORM STRENGTH: 25 MILLIGRAM ONE DAILY
     Route: 048
  20. ACURATE [Concomitant]
     Indication: Product used for unknown indication
     Route: 048
  21. OCUVITE COMPLETE [Concomitant]
     Indication: Product used for unknown indication
     Dosage: TWO PER DAY
     Route: 030

REACTIONS (1)
  - Death [Fatal]

NARRATIVE: CASE EVENT DATE: 20240101
